FAERS Safety Report 5501698-7 (Version None)
Quarter: 2007Q4

REPORT INFORMATION
  Report Type: 
  Country: None (occurrence: None)
  Receive Date: 20071026
  Receipt Date: 20071012
  Transmission Date: 20080405
  Serious: Yes (Life-Threatening, Hospitalization)
  Sender: FDA-Public Use
  Company Number: E2020-01577-SPO-JP

PATIENT
  Age: 66 Year
  Sex: Female

DRUGS (3)
  1. ARICEPT [Suspect]
     Indication: DEMENTIA ALZHEIMER'S TYPE
     Dosage: 3 MG, 1 IN 1 D, ORAL, 5 MG, 1 IN 1 D, ORAL
     Route: 048
     Dates: start: 20030629, end: 20030808
  2. ARICEPT [Suspect]
     Indication: DEMENTIA ALZHEIMER'S TYPE
     Dosage: 3 MG, 1 IN 1 D, ORAL, 5 MG, 1 IN 1 D, ORAL
     Route: 048
     Dates: start: 20030809, end: 20050403
  3. PEGASYS [Suspect]
     Indication: HEPATITIS C
     Dosage: 90 MCG, 1 IN 1 D, SUBCUTANEOUS
     Route: 058
     Dates: start: 20040411, end: 20050401

REACTIONS (11)
  - DISSEMINATED INTRAVASCULAR COAGULATION [None]
  - DRUG INEFFECTIVE [None]
  - HAEMATEMESIS [None]
  - HEPATIC FUNCTION ABNORMAL [None]
  - LIP HAEMORRHAGE [None]
  - METABOLIC ACIDOSIS [None]
  - NEPHRITIS [None]
  - PANCREATIC ENZYMES INCREASED [None]
  - RENAL FAILURE [None]
  - RESPIRATORY FAILURE [None]
  - WHITE BLOOD CELL COUNT INCREASED [None]
